FAERS Safety Report 10151130 (Version 4)
Quarter: 2014Q2

REPORT INFORMATION
  Report Type: Spontaneous
  Country: DE (occurrence: DE)
  Receive Date: 20140502
  Receipt Date: 20140623
  Transmission Date: 20141212
  Serious: Yes (Hospitalization)
  Sender: FDA-Public Use
  Company Number: DE-AMGEN INC.-DEUSP2014031533

PATIENT
  Age: 75 Year
  Sex: Male
  Weight: 77 kg

DRUGS (1)
  1. PROLIA [Suspect]
     Indication: OSTEOPOROSIS
     Dosage: 60 MG, Q3MO
     Route: 058
     Dates: start: 20130507, end: 20131108

REACTIONS (2)
  - Osteonecrosis of jaw [Recovered/Resolved]
  - Inappropriate schedule of drug administration [Unknown]
